FAERS Safety Report 14939122 (Version 1)
Quarter: 2018Q2

REPORT INFORMATION
  Report Type: Spontaneous
  Country: US (occurrence: US)
  Receive Date: 20180525
  Receipt Date: 20180525
  Transmission Date: 20180711
  Serious: No
  Sender: FDA-Public Use
  Company Number: US-SUNOVION-2018SUN001958

PATIENT
  Age: 54 Year
  Sex: Female

DRUGS (5)
  1. APTIOM [Suspect]
     Active Substance: ESLICARBAZEPINE ACETATE
     Dosage: UNK
     Route: 048
  2. APTIOM [Suspect]
     Active Substance: ESLICARBAZEPINE ACETATE
     Dosage: 800 MG, QD
     Route: 048
  3. KEPPRA [Concomitant]
     Active Substance: LEVETIRACETAM
  4. APTIOM [Suspect]
     Active Substance: ESLICARBAZEPINE ACETATE
     Indication: SEIZURE
     Dosage: UNK
     Route: 048
  5. VIMPAT [Concomitant]
     Active Substance: LACOSAMIDE
     Dosage: UNK

REACTIONS (1)
  - Dizziness [Unknown]
